FAERS Safety Report 23262510 (Version 3)
Quarter: 2025Q1

REPORT INFORMATION
  Report Type: Spontaneous
  Country: US (occurrence: US)
  Receive Date: 20231205
  Receipt Date: 20250106
  Transmission Date: 20250408
  Serious: No
  Sender: PFIZER
  Company Number: US-PFIZER INC-PV202300195555

PATIENT
  Age: 69 Year
  Sex: Female

DRUGS (2)
  1. BOSULIF [Suspect]
     Active Substance: BOSUTINIB MONOHYDRATE
     Indication: Chronic myeloid leukaemia
     Dosage: 500 MG, DAILY
     Route: 048
     Dates: start: 20230630
  2. BOSULIF [Suspect]
     Active Substance: BOSUTINIB MONOHYDRATE
     Indication: Philadelphia chromosome positive
     Dosage: 300 MG, DAILY, (TAKE 3 TABLETS (300 MG TOTAL) ONCE DAILY)
     Route: 048
     Dates: start: 20230630

REACTIONS (4)
  - Dry eye [Unknown]
  - Eye discharge [Unknown]
  - Herpes zoster [Unknown]
  - Disease recurrence [Unknown]
